FAERS Safety Report 9491171 (Version 1)
Quarter: 2013Q3

REPORT INFORMATION
  Report Type: Spontaneous
  Country: GB (occurrence: GB)
  Receive Date: 20130830
  Receipt Date: 20130830
  Transmission Date: 20140515
  Serious: Yes (Hospitalization)
  Sender: FDA-Public Use
  Company Number: GB-ROCHE-1268343

PATIENT
  Age: 34 Year
  Sex: Female
  Weight: 71.6 kg

DRUGS (4)
  1. XENICAL [Suspect]
     Indication: OBESITY
     Route: 048
     Dates: start: 20121211, end: 20130409
  2. LEVETIRACETAM [Concomitant]
     Indication: CONVULSION
  3. METFORMIN [Concomitant]
  4. TEGRETOL RETARD [Concomitant]
     Indication: CONVULSION

REACTIONS (2)
  - Complex partial seizures [Not Recovered/Not Resolved]
  - Condition aggravated [Unknown]
